FAERS Safety Report 7643579-9 (Version None)
Quarter: 2011Q3

REPORT INFORMATION
  Report Type: 
  Country: None (occurrence: None)
  Receive Date: 20110722
  Receipt Date: 20101022
  Transmission Date: 20111222
  Serious: No
  Sender: FDA-Public Use
  Company Number: 733775

PATIENT
  Age: 59 Year
  Sex: Female

DRUGS (3)
  1. ELOXATIN [Suspect]
     Indication: PRODUCT USED FOR UNKNOWN INDICATION
     Dosage: 85 MG/M2,
     Dates: start: 20100630, end: 20100630
  2. LEUCOVORIN CALCIUM [Suspect]
     Indication: PRODUCT USED FOR UNKNOWN INDICATION
     Dosage: EVERY CYCLE, INTRAVENOUS
     Route: 042
     Dates: start: 20100630, end: 20100630
  3. FLUOROURACIL [Suspect]
     Indication: PRODUCT USED FOR UNKNOWN INDICATION
     Dosage: EVERY CYCLE, INTRAVENOUS
     Route: 042
     Dates: start: 20100630, end: 20100630

REACTIONS (9)
  - NEUROPATHY PERIPHERAL [None]
  - ASTHENIA [None]
  - BALANCE DISORDER [None]
  - FALL [None]
  - MUSCLE ATROPHY [None]
  - HYPERAESTHESIA [None]
  - SENSORY LOSS [None]
  - PAIN [None]
  - PARAESTHESIA [None]
